FAERS Safety Report 5129542-0 (Version None)
Quarter: 2006Q4

REPORT INFORMATION
  Report Type: 
  Country: None (occurrence: None)
  Receive Date: 20061012
  Receipt Date: 20060929
  Transmission Date: 20070319
  Serious: Yes (Death)
  Sender: FDA-Public Use
  Company Number: 2006S1009246

PATIENT
  Age: 52 Year
  Sex: Male

DRUGS (2)
  1. FENTANY [Suspect]
     Indication: BACK PAIN
     Dosage: 300 UG/HR;Q3D; TDER; 100 UG/HR; 1X; PO
     Route: 062
  2. FENTANYL [Suspect]
     Indication: BACK PAIN
     Dosage: 300 UG/HR; Q3D; TDER; 100 UG/HR; 1X; PO
     Route: 062

REACTIONS (2)
  - INCORRECT ROUTE OF DRUG ADMINISTRATION [None]
  - MULTIPLE DRUG OVERDOSE [None]
